FAERS Safety Report 8318076-8 (Version None)
Quarter: 2012Q2

REPORT INFORMATION
  Report Type: 
  Country: None (occurrence: None)
  Receive Date: 20120427
  Receipt Date: 20120413
  Transmission Date: 20120825
  Serious: Yes (Hospitalization)
  Sender: FDA-Public Use
  Company Number: DE-RANBAXY-2012RR-55844

PATIENT
  Age: 20 Year
  Sex: Female

DRUGS (1)
  1. CEFPODOXIME PROXETIL [Suspect]
     Indication: INFECTION
     Dosage: UNK
     Route: 048

REACTIONS (4)
  - PARAESTHESIA [None]
  - PAIN [None]
  - HYPOAESTHESIA [None]
  - MULTIPLE SCLEROSIS [None]
